FAERS Safety Report 8014023-7 (Version None)
Quarter: 2011Q4

REPORT INFORMATION
  Report Type: 
  Country: None (occurrence: None)
  Receive Date: 20111229
  Receipt Date: 20111208
  Transmission Date: 20120403
  Serious: Yes (Death, Other)
  Sender: FDA-Public Use
  Company Number: GB-ROCHE-1013970

PATIENT
  Sex: Male

DRUGS (12)
  1. ASPIRIN [Concomitant]
     Dates: start: 20090810
  2. FINASTERIDE [Concomitant]
     Dates: start: 20090810
  3. LUCENTIS [Suspect]
     Indication: AGE-RELATED MACULAR DEGENERATION
     Route: 050
     Dates: start: 20070423
  4. OMACOR [Concomitant]
     Dates: start: 20090810
  5. ALENDRONATE SODIUM [Concomitant]
     Dates: start: 20090810
  6. PERINDOPRIL [Concomitant]
     Dates: start: 20090810
  7. SIMVASTATIN [Concomitant]
     Dates: start: 20090810
  8. CLOPIDOGREL [Concomitant]
     Dates: start: 20090810
  9. BISOPROLOL [Concomitant]
     Dates: start: 20090810
  10. NICORANDIL [Concomitant]
     Dates: start: 20090810
  11. ISMN [Concomitant]
     Dates: start: 20090810
  12. NITROGLYCERIN [Concomitant]
     Dates: start: 20080808

REACTIONS (6)
  - HYPERCHOLESTEROLAEMIA [None]
  - ANAEMIA [None]
  - DEATH [None]
  - BENIGN PROSTATIC HYPERPLASIA [None]
  - SKIN ULCER [None]
  - CELLULITIS [None]
